FAERS Safety Report 4472002-0 (Version None)
Quarter: 2004Q4

REPORT INFORMATION
  Report Type: 
  Country: None (occurrence: None)
  Receive Date: 20041007
  Receipt Date: 20040826
  Transmission Date: 20050328
  Serious: Yes (Other)
  Sender: FDA-Public Use
  Company Number: 2004058549

PATIENT
  Sex: Female

DRUGS (2)
  1. LIPITOR [Suspect]
     Indication: ILL-DEFINED DISORDER
     Dosage: 80 MG (80 MG, 1 IN 1 D), ORAL
     Route: 048
  2. PRAVASTATIN [Suspect]
     Indication: ILL-DEFINED DISORDER

REACTIONS (2)
  - MYOCARDIAL INFARCTION [None]
  - TRANSAMINASES INCREASED [None]
